FAERS Safety Report 8026295-3 (Version None)
Quarter: 2012Q1

REPORT INFORMATION
  Report Type: 
  Country: None (occurrence: None)
  Receive Date: 20120105
  Receipt Date: 20111219
  Transmission Date: 20120608
  Serious: No
  Sender: FDA-Public Use
  Company Number: US-ABBOTT-11P-163-0882288-00

PATIENT
  Age: 31 Year
  Sex: Female
  Weight: 63.56 kg

DRUGS (5)
  1. MULTI-VITAMINS [Concomitant]
     Indication: VITAMIN SUPPLEMENTATION
  2. SYNTHROID [Suspect]
     Indication: HYPOTHYROIDISM
     Dates: start: 20080101, end: 20111128
  3. PROBIOTIC [Concomitant]
     Indication: PROBIOTIC THERAPY
  4. VITAMIN C [Concomitant]
     Indication: VITAMIN SUPPLEMENTATION
  5. SYNTHROID [Suspect]
     Dates: start: 20111128

REACTIONS (10)
  - DIZZINESS [None]
  - FATIGUE [None]
  - DYSPHEMIA [None]
  - TABLET PHYSICAL ISSUE [None]
  - MEMORY IMPAIRMENT [None]
  - PALPITATIONS [None]
  - BLOOD THYROID STIMULATING HORMONE NORMAL [None]
  - MUSCULAR WEAKNESS [None]
  - DYSARTHRIA [None]
  - TREMOR [None]
